FAERS Safety Report 25315886 (Version 1)
Quarter: 2025Q2

REPORT INFORMATION
  Report Type: Spontaneous
  Country: CA (occurrence: CA)
  Receive Date: 20250515
  Receipt Date: 20250515
  Transmission Date: 20250716
  Serious: Yes (Death, Other)
  Sender: INTERCEPT PHARMACEUTICALS
  Company Number: CA-ADVANZ PHARMA-202406005346

PATIENT
  Age: 60 Year
  Sex: Female

DRUGS (4)
  1. OCALIVA [Suspect]
     Active Substance: OBETICHOLIC ACID
     Indication: Primary biliary cholangitis
     Dosage: 5 MG, QD (OCALIVA)
     Route: 048
     Dates: start: 20240225, end: 202410
  2. URSODIOL [Concomitant]
     Active Substance: URSODIOL
     Dates: start: 20230228
  3. STELARA [Concomitant]
     Active Substance: USTEKINUMAB
  4. BEZAFIBRATE [Concomitant]
     Active Substance: BEZAFIBRATE

REACTIONS (3)
  - Death [Fatal]
  - Blood alkaline phosphatase increased [Unknown]
  - Drug ineffective [Unknown]

NARRATIVE: CASE EVENT DATE: 20250101
